FAERS Safety Report 5951486-2 (Version None)
Quarter: 2008Q4

REPORT INFORMATION
  Report Type: 
  Country: None (occurrence: None)
  Receive Date: 20081113
  Receipt Date: 20081104
  Transmission Date: 20090506
  Serious: Yes (Hospitalization)
  Sender: FDA-Public Use
  Company Number: IE-AVENTIS-200820439GDDC

PATIENT
  Age: 64 Year
  Sex: Male

DRUGS (7)
  1. INSULIN GLARGINE [Suspect]
     Indication: DIABETES MELLITUS
     Route: 058
     Dates: start: 20050823
  2. OPTIPEN (INSULIN PUMP) [Suspect]
     Indication: DIABETES MELLITUS
  3. CODE UNBROKEN [Suspect]
     Dates: start: 20050823, end: 20081027
  4. METFORMIN HCL [Concomitant]
     Dates: end: 20081001
  5. LIBRIUM                            /00011501/ [Concomitant]
     Indication: ALCOHOL ABUSE
  6. ASPIRIN [Concomitant]
  7. PLAVIX [Concomitant]
     Indication: PROPHYLAXIS

REACTIONS (1)
  - GASTROENTERITIS [None]
